FAERS Safety Report 12135175 (Version 1)
Quarter: 2016Q1

REPORT INFORMATION
  Report Type: Report from Study
  Country: JP (occurrence: JP)
  Receive Date: 20160301
  Receipt Date: 20160301
  Transmission Date: 20160526
  Serious: Yes (Hospitalization, Other)
  Sender: FDA-Public Use
  Company Number: PHHO2014JP001851

PATIENT
  Age: 35 Year
  Sex: Female
  Weight: 91 kg

DRUGS (8)
  1. REMICADE [Concomitant]
     Active Substance: INFLIXIMAB
  2. BONALFAHIGH [Concomitant]
     Indication: PUSTULAR PSORIASIS
     Route: 061
     Dates: start: 20130205
  3. HIRUDOID [Concomitant]
     Active Substance: GLYCOSAMINOGLYCANS
     Indication: PUSTULAR PSORIASIS
     Route: 061
     Dates: start: 20130826
  4. DIOVAN [Concomitant]
     Active Substance: VALSARTAN
     Indication: HYPERTENSION
     Dosage: 40 MG
     Route: 048
     Dates: start: 20060914
  5. AIN457 [Suspect]
     Active Substance: SECUKINUMAB
     Indication: PUSTULAR PSORIASIS
     Dosage: UNK
     Route: 058
     Dates: start: 20130909, end: 20131224
  6. ALLELOCK [Concomitant]
     Active Substance: OLOPATADINE HYDROCHLORIDE
     Indication: PUSTULAR PSORIASIS
     Dosage: 10 MG, UNK
     Route: 048
     Dates: start: 20120806, end: 20140513
  7. ADALAT [Concomitant]
     Active Substance: NIFEDIPINE
     Indication: HYPERTENSION
     Dosage: 40 MG, UNK
     Route: 048
     Dates: start: 20131009
  8. MYSER [Concomitant]
     Active Substance: DIFLUPREDNATE
     Indication: PUSTULAR PSORIASIS
     Route: 061
     Dates: start: 20040608

REACTIONS (1)
  - Drug-induced liver injury [Recovered/Resolved]

NARRATIVE: CASE EVENT DATE: 20140130
